FAERS Safety Report 9173642 (Version 1)
Quarter: 2013Q1

REPORT INFORMATION
  Report Type: Report from Study
  Country: GB (occurrence: GB)
  Receive Date: 20130320
  Receipt Date: 20130320
  Transmission Date: 20140127
  Serious: Yes (Hospitalization)
  Sender: FDA-Public Use
  Company Number: GB-JNJFOC-20130306387

PATIENT
  Age: 61 Year
  Sex: Male
  Weight: 89 kg

DRUGS (7)
  1. USTEKINUMAB [Suspect]
     Indication: PSORIASIS
     Route: 058
     Dates: start: 20111229, end: 20120516
  2. DICLOFENAC [Concomitant]
     Dates: start: 20080305
  3. VITAMIN D [Concomitant]
     Dates: start: 20120501
  4. OMEPRAZOLE [Concomitant]
     Dates: start: 20120501
  5. CO-CODAMOL [Concomitant]
     Dates: start: 20120501
  6. CICLOSPORIN [Concomitant]
     Dates: start: 20080305
  7. CICLOSPORIN [Concomitant]
     Dates: start: 20070802, end: 20080123

REACTIONS (1)
  - Cholecystitis [Recovered/Resolved]
